FAERS Safety Report 7861568-6 (Version None)
Quarter: 2011Q4

REPORT INFORMATION
  Report Type: 
  Country: None (occurrence: None)
  Receive Date: 20111027
  Receipt Date: 20111021
  Transmission Date: 20120403
  Serious: Yes (Death)
  Sender: FDA-Public Use
  Company Number: FR-PFIZER INC-2011256773

PATIENT
  Sex: Female

DRUGS (1)
  1. CRIZOTINIB [Suspect]

REACTIONS (1)
  - DEATH [None]
